FAERS Safety Report 15446959 (Version 1)
Quarter: 2018Q3

REPORT INFORMATION
  Report Type: Spontaneous
  Country: US (occurrence: US)
  Receive Date: 20180928
  Receipt Date: 20180928
  Transmission Date: 20181010
  Serious: No
  Sender: FDA-Public Use
  Company Number: US-LEXICON PHARMACEUTICALS, INC-18-1606-01090

PATIENT
  Sex: Female

DRUGS (11)
  1. TELOTRISTAT ETHYL [Suspect]
     Active Substance: TELOTRISTAT ETHYL
     Indication: CARCINOID TUMOUR OF THE SMALL BOWEL
     Route: 048
     Dates: start: 20171024
  2. MAGNESIUM [Concomitant]
     Active Substance: MAGNESIUM
  3. FLONASE [Concomitant]
     Active Substance: FLUTICASONE PROPIONATE
  4. HYOSCYAMINE. [Concomitant]
     Active Substance: HYOSCYAMINE
  5. IPRATROPIUM SOL [Concomitant]
  6. LISINOPRIL. [Concomitant]
     Active Substance: LISINOPRIL
  7. VESICARE [Concomitant]
     Active Substance: SOLIFENACIN SUCCINATE
  8. VITAMIN D [Concomitant]
     Active Substance: CHOLECALCIFEROL
  9. CORAL CALCIUM [Concomitant]
     Active Substance: DIETARY SUPPLEMENT
  10. ZOFRAN [Concomitant]
     Active Substance: ONDANSETRON HYDROCHLORIDE
  11. LOMOTIL [Concomitant]
     Active Substance: ATROPINE SULFATE\DIPHENOXYLATE HYDROCHLORIDE

REACTIONS (3)
  - Vulvovaginal pain [Unknown]
  - Muscle spasms [Unknown]
  - Proctalgia [Unknown]

NARRATIVE: CASE EVENT DATE: 2018
